FAERS Safety Report 5766472-5 (Version None)
Quarter: 2008Q2

REPORT INFORMATION
  Report Type: 
  Country: None (occurrence: None)
  Receive Date: 20080606
  Receipt Date: 20080528
  Transmission Date: 20081010
  Serious: Yes (Death, Other)
  Sender: FDA-Public Use
  Company Number: 062-21880-08030108

PATIENT
  Age: 67 Year
  Sex: Female

DRUGS (2)
  1. REVLIMID [Suspect]
     Indication: MULTIPLE MYELOMA
     Dosage: 25 MG, DAILY, ORAL
     Route: 048
     Dates: start: 20071001, end: 20080201
  2. DEXAMETHASONE TAB [Concomitant]

REACTIONS (27)
  - ARTERIOSCLEROSIS [None]
  - ARTERIOSCLEROSIS CORONARY ARTERY [None]
  - CARDIOMEGALY [None]
  - CARDIOTOXICITY [None]
  - CORONARY ARTERY STENOSIS [None]
  - DISEASE PROGRESSION [None]
  - DRUG INEFFECTIVE [None]
  - EMPHYSEMA [None]
  - LEFT VENTRICULAR FAILURE [None]
  - LUNG DISORDER [None]
  - METASTASES TO ADRENALS [None]
  - METASTASES TO BONE MARROW [None]
  - METASTASES TO BREAST [None]
  - METASTASES TO HEART [None]
  - METASTASES TO KIDNEY [None]
  - METASTASES TO LIVER [None]
  - METASTASES TO PANCREAS [None]
  - METASTASES TO PLEURA [None]
  - METASTASES TO SKIN [None]
  - METASTASES TO SOFT TISSUE [None]
  - METASTASES TO SPLEEN [None]
  - OBSTRUCTIVE AIRWAYS DISORDER [None]
  - OSTEOLYSIS [None]
  - PULMONARY FIBROSIS [None]
  - PULMONARY HAEMOSIDEROSIS [None]
  - PULMONARY OEDEMA [None]
  - SHOCK [None]
